FAERS Safety Report 6593837-4 (Version None)
Quarter: 2010Q1

REPORT INFORMATION
  Report Type: 
  Country: None (occurrence: None)
  Receive Date: 20100222
  Receipt Date: 20100209
  Transmission Date: 20100710
  Serious: Yes (Other)
  Sender: FDA-Public Use
  Company Number: FR-ABBOTT-09P-056-0610805-00

PATIENT
  Age: 26 Year
  Sex: Female
  Weight: 49 kg

DRUGS (5)
  1. HUMIRA [Suspect]
     Indication: CROHN'S DISEASE
     Route: 058
     Dates: start: 20090520, end: 20091115
  2. LIBRAX [Concomitant]
     Indication: ABDOMINAL PAIN
     Dates: start: 20081119
  3. LIBRAX [Concomitant]
     Indication: INFLAMMATORY BOWEL DISEASE
  4. LOPERAMIDE HCL [Concomitant]
     Indication: DIARRHOEA
     Dates: start: 20070809
  5. TOPALGIC [Concomitant]
     Indication: PAIN
     Dates: start: 20070621

REACTIONS (1)
  - ABORTION SPONTANEOUS [None]
